FAERS Safety Report 4517919-3 (Version None)
Quarter: 2004Q4

REPORT INFORMATION
  Report Type: 
  Country: None (occurrence: None)
  Receive Date: 20041203
  Receipt Date: 20041108
  Transmission Date: 20050328
  Serious: Yes (Other)
  Sender: FDA-Public Use
  Company Number: FR-BRISTOL-MYERS SQUIBB COMPANY-12759569

PATIENT
  Age: 55 Year
  Sex: Male

DRUGS (5)
  1. APROVEL TABS 150 MG [Suspect]
     Indication: HYPERTENSION
     Route: 048
     Dates: start: 20040624, end: 20040823
  2. GLUCOPHAGE [Concomitant]
     Indication: DIABETES MELLITUS NON-INSULIN-DEPENDENT
     Route: 048
  3. GLYBURIDE [Concomitant]
     Route: 048
  4. IMOVANE [Concomitant]
     Indication: SLEEP DISORDER
     Route: 048
  5. PIASCLEDINE [Concomitant]
     Indication: OSTEOARTHRITIS
     Route: 048

REACTIONS (2)
  - DIARRHOEA [None]
  - PANCREATITIS ACUTE [None]
